FAERS Safety Report 4758406-7 (Version None)
Quarter: 2005Q3

REPORT INFORMATION
  Report Type: 
  Country: None (occurrence: None)
  Receive Date: 20050826
  Receipt Date: 20050502
  Transmission Date: 20060218
  Serious: Yes (Other)
  Sender: FDA-Public Use
  Company Number: WAES 0505USA00306

PATIENT
  Age: 44 Year
  Sex: Male
  Weight: 97.0698 kg

DRUGS (5)
  1. ZETIA [Suspect]
     Indication: BLOOD CHOLESTEROL INCREASED
     Dosage: 10 MG/DAILY/PO
     Route: 048
     Dates: start: 20030807, end: 20050429
  2. ZETIA [Suspect]
     Indication: HYPERLIPIDAEMIA
     Dosage: 10 MG/DAILY/PO
     Route: 048
     Dates: start: 20030807, end: 20050429
  3. METOPROLOL SUCCINATE [Suspect]
     Dosage: SEE IMAGE
  4. ASPIRIN [Concomitant]
  5. VITAMINS [Concomitant]

REACTIONS (8)
  - ALANINE AMINOTRANSFERASE INCREASED [None]
  - ASPARTATE AMINOTRANSFERASE INCREASED [None]
  - EPIDERMAL NAEVUS [None]
  - HEART RATE DECREASED [None]
  - HYPERTENSION [None]
  - MUSCLE INJURY [None]
  - RHABDOMYOLYSIS [None]
  - TENDON DISORDER [None]
